FAERS Safety Report 16977656 (Version 1)
Quarter: 2019Q4

REPORT INFORMATION
  Report Type: Spontaneous
  Country: BR (occurrence: BR)
  Receive Date: 20191031
  Receipt Date: 20191031
  Transmission Date: 20200122
  Serious: Yes (Hospitalization, Other)
  Sender: FDA-Public Use
  Company Number: BR-AMGEN-BRASP2019179357

PATIENT
  Age: 60 Year
  Sex: Female

DRUGS (1)
  1. ENBREL [Suspect]
     Active Substance: ETANERCEPT
     Indication: PRODUCT USED FOR UNKNOWN INDICATION
     Dosage: UNK
     Route: 065
     Dates: start: 2007

REACTIONS (6)
  - Oedema peripheral [Unknown]
  - Arthralgia [Unknown]
  - Oropharyngeal discomfort [Unknown]
  - Feeding disorder [Unknown]
  - Joint range of motion decreased [Unknown]
  - Ear discomfort [Unknown]
